FAERS Safety Report 5317150-8 (Version None)
Quarter: 2007Q2

REPORT INFORMATION
  Report Type: 
  Country: None (occurrence: None)
  Receive Date: 20070504
  Receipt Date: 20070427
  Transmission Date: 20071010
  Serious: Yes (Other)
  Sender: FDA-Public Use
  Company Number: US-PFIZER INC-2007018318

PATIENT
  Sex: Male
  Weight: 77.1 kg

DRUGS (6)
  1. LATANOPROST [Suspect]
     Indication: GLAUCOMA
     Route: 047
  2. LATANOPROST [Suspect]
     Indication: EYE DEGENERATIVE DISORDER
  3. PRAVASTATIN [Concomitant]
  4. NORVASC [Concomitant]
  5. HYZAAR [Concomitant]
  6. ECOSPRIN [Concomitant]

REACTIONS (1)
  - CAROTID ARTERY BYPASS [None]
